FAERS Safety Report 4275025-X (Version None)
Quarter: 2004Q1

REPORT INFORMATION
  Report Type: 
  Country: None (occurrence: None)
  Receive Date: 20040116
  Receipt Date: 20040108
  Transmission Date: 20041129
  Serious: Yes (Other)
  Sender: FDA-Public Use
  Company Number: 2004-01-0170

PATIENT
  Sex: Female

DRUGS (1)
  1. INTERFERON ALFA INJECTABLE [Suspect]
     Indication: HEPATITIS C

REACTIONS (3)
  - EXCORIATION [None]
  - PRURITUS GENERALISED [None]
  - THROMBOTIC MICROANGIOPATHY [None]
